FAERS Safety Report 4305354-2 (Version None)
Quarter: 2004Q1

REPORT INFORMATION
  Report Type: 
  Country: None (occurrence: None)
  Receive Date: 20040226
  Receipt Date: 20030710
  Transmission Date: 20041129
  Serious: No
  Sender: FDA-Public Use
  Company Number: US-BRISTOL-MYERS SQUIBB COMPANY-12322913

PATIENT
  Age: 48 Year
  Sex: Female
  Weight: 88 kg

DRUGS (6)
  1. TAXOL [Suspect]
     Indication: BREAST CANCER
     Route: 042
  2. DECADRON [Concomitant]
     Indication: PREMEDICATION
  3. ZOMETA [Concomitant]
  4. HERCEPTIN [Concomitant]
  5. XANAX [Concomitant]
  6. PAXIL [Concomitant]

REACTIONS (1)
  - CONJUNCTIVITIS [None]
